FAERS Safety Report 8412487-8 (Version None)
Quarter: 2012Q2

REPORT INFORMATION
  Report Type: 
  Country: None (occurrence: None)
  Receive Date: 20120605
  Receipt Date: 20120521
  Transmission Date: 20120825
  Serious: No
  Sender: FDA-Public Use
  Company Number: US-AMGEN-USASP2012031809

PATIENT
  Age: 66 Year
  Sex: Female

DRUGS (1)
  1. ENBREL [Suspect]
     Indication: RHEUMATOID ARTHRITIS
     Dosage: 50 MG, QWK
     Dates: start: 20030701

REACTIONS (9)
  - ABDOMINAL PAIN UPPER [None]
  - CONTUSION [None]
  - VISUAL ACUITY REDUCED [None]
  - FUNGAL SKIN INFECTION [None]
  - BLISTER [None]
  - SPIDER VEIN [None]
  - EAR INFECTION [None]
  - EAR PAIN [None]
  - HEADACHE [None]
